FAERS Safety Report 7257232-7 (Version None)
Quarter: 2011Q1

REPORT INFORMATION
  Report Type: 
  Country: None (occurrence: None)
  Receive Date: 20110129
  Receipt Date: 20100719
  Transmission Date: 20110831
  Serious: No
  Sender: FDA-Public Use
  Company Number: US-ABBOTT-10P-163-0658698-00

PATIENT
  Sex: Female
  Weight: 70.37 kg

DRUGS (3)
  1. HUMIRA [Suspect]
     Indication: RHEUMATOID ARTHRITIS
     Dates: start: 20100401
  2. ALTACE [Concomitant]
     Indication: BLOOD PRESSURE
     Dosage: DAILY
  3. DAILY VITAMINS [Concomitant]
     Indication: PRODUCT USED FOR UNKNOWN INDICATION
     Dosage: DAILY USAGE

REACTIONS (3)
  - FATIGUE [None]
  - ERYTHEMA [None]
  - MELANOCYTIC NAEVUS [None]
